FAERS Safety Report 4467907-0 (Version None)
Quarter: 2004Q3

REPORT INFORMATION
  Report Type: 
  Country: None (occurrence: None)
  Receive Date: 20040929
  Receipt Date: 20040917
  Transmission Date: 20050211
  Serious: Yes (Hospitalization)
  Sender: FDA-Public Use
  Company Number: 200409164

PATIENT
  Age: 45 Year
  Sex: Female
  Weight: 65.7 kg

DRUGS (9)
  1. HAEMATE HS (FACTOR VIII (ANTIHAEMOPHILIC FACTOR) ) (ZLB BEHRING) [Suspect]
     Indication: LIVER OPERATION
     Dosage: 1000 IU BID IV;   1000 IU DAILY IV
     Route: 042
     Dates: start: 20040826, end: 20040902
  2. HAEMATE HS (FACTOR VIII (ANTIHAEMOPHILIC FACTOR) ) (ZLB BEHRING) [Suspect]
     Indication: VON WILLEBRAND'S DISEASE
     Dosage: 1000 IU BID IV;   1000 IU DAILY IV
     Route: 042
     Dates: start: 20040826, end: 20040902
  3. HAEMATE HS (FACTOR VIII (ANTIHAEMOPHILIC FACTOR) ) (ZLB BEHRING) [Suspect]
     Indication: LIVER OPERATION
     Dosage: 1000 IU BID IV;   1000 IU DAILY IV
     Route: 042
     Dates: start: 20040903, end: 20040905
  4. HAEMATE HS (FACTOR VIII (ANTIHAEMOPHILIC FACTOR) ) (ZLB BEHRING) [Suspect]
     Indication: VON WILLEBRAND'S DISEASE
     Dosage: 1000 IU BID IV;   1000 IU DAILY IV
     Route: 042
     Dates: start: 20040903, end: 20040905
  5. PANTOPRAZOLE SODIUM [Concomitant]
  6. CYCLOKAPRON [Concomitant]
  7. MAGNESIUM [Concomitant]
  8. NOVALGIN [Concomitant]
  9. BIFITERAL [Concomitant]

REACTIONS (7)
  - CHILLS [None]
  - HEADACHE [None]
  - MUSCLE CRAMP [None]
  - NAUSEA [None]
  - PYREXIA [None]
  - VOMITING [None]
  - WOUND INFECTION [None]
